FAERS Safety Report 6370806-0 (Version None)
Quarter: 2009Q3

REPORT INFORMATION
  Report Type: 
  Country: None (occurrence: None)
  Receive Date: 20090923
  Receipt Date: 20070515
  Transmission Date: 20100115
  Serious: Yes (Other)
  Sender: FDA-Public Use
  Company Number: US-ASTRAZENECA-2006UW23786

PATIENT
  Age: 16826 Day
  Sex: Male
  Weight: 158.8 kg

DRUGS (39)
  1. SEROQUEL [Suspect]
     Indication: ANTIDEPRESSANT THERAPY
     Route: 048
     Dates: start: 19970101
  2. SEROQUEL [Suspect]
     Route: 048
     Dates: start: 20000815, end: 20020624
  3. SEROQUEL [Suspect]
     Route: 048
     Dates: start: 20011113
  4. CLOZARIL [Concomitant]
  5. HALDOL [Concomitant]
  6. THORAZINE [Concomitant]
  7. TRILAFON [Concomitant]
  8. TRAZODONE HYDROCHLORIDE [Concomitant]
     Dates: start: 20011103
  9. ACETAMINOPHEN [Concomitant]
     Dates: start: 20011203
  10. CLONAZEPAM [Concomitant]
     Route: 048
     Dates: start: 20011204
  11. LOSARTAN POTASSIUM [Concomitant]
     Route: 048
     Dates: start: 20011129
  12. GABAPENTIN [Concomitant]
     Route: 048
     Dates: start: 20011129
  13. GABAPENTIN [Concomitant]
     Route: 048
     Dates: start: 20011129
  14. LEVOTHYROXINE SODIUM [Concomitant]
     Route: 048
     Dates: start: 20011129
  15. OLANZAPINE [Concomitant]
     Route: 048
     Dates: start: 20011203
  16. OLANZAPINE [Concomitant]
     Route: 048
     Dates: start: 20011130
  17. OXCARBAZEPINE [Concomitant]
     Route: 048
     Dates: start: 20011130
  18. PENTAZOCINE [Concomitant]
     Route: 048
     Dates: start: 20010927
  19. CLORAZEPATE DIPOTASSIUM [Concomitant]
     Route: 048
     Dates: start: 20011005
  20. DIFLUCAN [Concomitant]
     Route: 048
     Dates: start: 20011220
  21. TRIAMCINOLONE [Concomitant]
     Dates: start: 20011227
  22. BACTROBAN [Concomitant]
     Dates: start: 20011227
  23. COUMADIN [Concomitant]
     Route: 048
     Dates: start: 20020211
  24. LORAZEPAM [Concomitant]
     Route: 048
     Dates: start: 20020314
  25. PAXIL [Concomitant]
     Route: 048
     Dates: start: 20020403
  26. HYDROCODONE [Concomitant]
     Route: 048
     Dates: start: 20020621
  27. TRICOR [Concomitant]
     Route: 048
     Dates: start: 20021104
  28. VIOXX [Concomitant]
     Route: 048
     Dates: start: 20030120
  29. ZETIA [Concomitant]
     Route: 048
     Dates: start: 20030306
  30. ULTRACET [Concomitant]
     Dosage: 37.5 MG TO 325 MG
     Route: 048
     Dates: start: 20030311
  31. MAXIDONE [Concomitant]
     Dosage: 10 MG TO 750 MG
     Route: 048
     Dates: start: 20030313
  32. TOPAMAX [Concomitant]
     Route: 048
     Dates: start: 20030604
  33. CHLORPROMAZINE [Concomitant]
     Route: 048
     Dates: start: 20031028
  34. CRESTOR [Concomitant]
     Route: 048
     Dates: start: 20031106
  35. FUROSEMIDE [Concomitant]
     Route: 048
     Dates: start: 20040414
  36. HUMULIN R [Concomitant]
     Dosage: STRENGTH-100 UNITS
     Dates: start: 20040419
  37. CLONIDINE [Concomitant]
     Route: 048
     Dates: start: 20040504
  38. SULAR ER [Concomitant]
     Route: 048
     Dates: start: 20040815
  39. COZAAR [Concomitant]
     Dosage: DAILY
     Route: 048
     Dates: start: 20041129

REACTIONS (5)
  - DIABETIC COMA [None]
  - DIABETIC KETOACIDOSIS [None]
  - TARDIVE DYSKINESIA [None]
  - TYPE 1 DIABETES MELLITUS [None]
  - TYPE 2 DIABETES MELLITUS [None]
